FAERS Safety Report 7084595-8 (Version None)
Quarter: 2010Q4

REPORT INFORMATION
  Report Type: 
  Country: None (occurrence: None)
  Receive Date: 20101104
  Receipt Date: 20101024
  Transmission Date: 20110411
  Serious: Yes (Hospitalization, Other)
  Sender: FDA-Public Use
  Company Number: PHHY2009IL28410

PATIENT
  Age: 61 Year
  Sex: Male

DRUGS (1)
  1. SANDOSTATIN LAR [Suspect]
     Indication: CARCINOID TUMOUR
     Dosage: 30 MG, UNK

REACTIONS (4)
  - ABDOMINAL PAIN [None]
  - ABDOMINAL RIGIDITY [None]
  - CONSTIPATION [None]
  - TACHYCARDIA [None]
